FAERS Safety Report 5368509-4 (Version None)
Quarter: 2007Q2

REPORT INFORMATION
  Report Type: 
  Country: None (occurrence: None)
  Receive Date: 20070619
  Receipt Date: 20070608
  Transmission Date: 20071010
  Serious: Yes (Life-Threatening)
  Sender: FDA-Public Use
  Company Number: URSO-2007-135

PATIENT
  Age: 63 Year
  Sex: Male

DRUGS (3)
  1. URSO 250 [Suspect]
     Indication: HEPATIC CIRRHOSIS
     Dosage: 600 MG ORAL
     Route: 048
     Dates: start: 20041209, end: 20070518
  2. LIVACT               (ISOLEUCINE/LEUCINE/VALINE) [Concomitant]
  3. LANIRAPID          (METILDIGOXIN) [Concomitant]

REACTIONS (3)
  - INTERSTITIAL LUNG DISEASE [None]
  - NO THERAPEUTIC RESPONSE [None]
  - PYREXIA [None]
